FAERS Safety Report 8458037-1 (Version None)
Quarter: 2012Q2

REPORT INFORMATION
  Report Type: 
  Country: None (occurrence: None)
  Receive Date: 20120622
  Receipt Date: 20120620
  Transmission Date: 20120825
  Serious: Yes (Other)
  Sender: FDA-Public Use
  Company Number: US-JNJFOC-20120314657

PATIENT
  Sex: Female

DRUGS (6)
  1. UNSPECIFIED BLOOD PRESSURE MEDS [Concomitant]
     Indication: CARDIAC DISORDER
     Route: 065
  2. BENADRYL [Suspect]
     Indication: MULTIPLE ALLERGIES
     Route: 048
  3. ALL OTHER THERAPEUTIC PRODUCTS [Concomitant]
     Indication: PRODUCT USED FOR UNKNOWN INDICATION
     Route: 065
  4. EPIPEN [Suspect]
     Indication: MULTIPLE ALLERGIES
     Dosage: 11-12 YEARS
     Route: 065
  5. ZYRTEC ALLERGY [Suspect]
     Route: 048
  6. ZYRTEC ALLERGY [Suspect]
     Indication: MULTIPLE ALLERGIES
     Dosage: 11-12 YEARS
     Route: 048

REACTIONS (5)
  - EXTRASYSTOLES [None]
  - DRUG INEFFECTIVE [None]
  - PRODUCT QUALITY ISSUE [None]
  - DIZZINESS [None]
  - OEDEMA PERIPHERAL [None]
